FAERS Safety Report 10983502 (Version 1)
Quarter: 2015Q2

REPORT INFORMATION
  Report Type: Spontaneous
  Country: None (occurrence: None)
  Receive Date: 20150402
  Receipt Date: 20150402
  Transmission Date: 20150821
  Serious: No
  Sender: FDA-Public Use
  Company Number: None

PATIENT
  Age: 23 Year
  Sex: Female
  Weight: 61.69 kg

DRUGS (1)
  1. AMPHETAMINE SALTS [Suspect]
     Active Substance: AMPHETAMINE ASPARTATE\AMPHETAMINE SULFATE\DEXTROAMPHETAMINE SACCHARATE\DEXTROAMPHETAMINE SULFATE
     Indication: ATTENTION DEFICIT/HYPERACTIVITY DISORDER
     Dosage: 20MG, QUANTITY OF 60 PILLS TWICE DAILY TAKEN BY MOUTH
     Route: 048

REACTIONS (8)
  - Drug effect decreased [None]
  - Asthenia [None]
  - Disturbance in attention [None]
  - Apathy [None]
  - Fatigue [None]
  - Educational problem [None]
  - Product substitution issue [None]
  - Job dissatisfaction [None]

NARRATIVE: CASE EVENT DATE: 20150401
